FAERS Safety Report 6262953-9 (Version None)
Quarter: 2009Q3

REPORT INFORMATION
  Report Type: 
  Country: None (occurrence: None)
  Receive Date: 20090701
  Receipt Date: 20090616
  Transmission Date: 20100115
  Serious: Yes (Other)
  Sender: FDA-Public Use
  Company Number: THYM-1001059

PATIENT
  Age: 28 Year
  Sex: Male
  Weight: 73 kg

DRUGS (3)
  1. THYMOGLOBULIN [Suspect]
     Indication: APLASTIC ANAEMIA
     Dosage: 3.75 MG/KG, INTRAVENOUS
     Route: 042
     Dates: start: 20090520, end: 20090521
  2. PREDNISOLONE ACETATE [Concomitant]
  3. CYCLOSPORINE [Concomitant]

REACTIONS (6)
  - FEELING HOT [None]
  - HEADACHE [None]
  - INFUSION RELATED REACTION [None]
  - INJECTION SITE PAIN [None]
  - PYREXIA [None]
  - URTICARIA [None]
